FAERS Safety Report 22245289 (Version 1)
Quarter: 2023Q2

REPORT INFORMATION
  Report Type: Spontaneous
  Country: NL (occurrence: NL)
  Receive Date: 20230424
  Receipt Date: 20230424
  Transmission Date: 20230722
  Serious: Yes (Death)
  Sender: FDA-Public Use
  Company Number: None

PATIENT
  Sex: Female
  Weight: 95 kg

DRUGS (5)
  1. LOSARTAN POTASSIUM [Suspect]
     Active Substance: LOSARTAN POTASSIUM
     Indication: Hypertension
     Dosage: 1X PER DAY 1 PIECE
     Dates: start: 20170103, end: 20230201
  2. TIOTROPIUM BROMIDE [Concomitant]
     Active Substance: TIOTROPIUM BROMIDE
     Dosage: INHALATION POWDER, 13 ?G (MICROGRAM)
  3. ALBUTEROL [Concomitant]
     Active Substance: ALBUTEROL
     Dosage: AEROSOL, 100 ?G/DOSE (MICROGRAM PER DOSE)
  4. ESTRIOL [Concomitant]
     Active Substance: ESTRIOL
     Dosage: CREAM FOR VAGINAL USE, 1 MG/G (MILLIGRAM PER GRAM)
  5. METOPROLOL [Concomitant]
     Active Substance: METOPROLOL
     Dosage: TABLET WITH REGULATED RELEASE 50 MG (MILLIGRAM)

REACTIONS (2)
  - Laryngeal oedema [Fatal]
  - Rash [Unknown]
